FAERS Safety Report 10095478 (Version 1)
Quarter: 2014Q2

REPORT INFORMATION
  Report Type: Spontaneous
  Country: FR (occurrence: FR)
  Receive Date: 20140422
  Receipt Date: 20140422
  Transmission Date: 20141212
  Serious: Yes (Hospitalization)
  Sender: FDA-Public Use
  Company Number: FR-PFIZER INC-2014108730

PATIENT
  Age: 8 Year
  Sex: Male
  Weight: 32 kg

DRUGS (2)
  1. ADVILMED ENFANTS ET NOURRISSONS [Suspect]
     Indication: ANALGESIC THERAPY
     Dosage: 1 DOSE/ WEIGHT THRICE DAILY
     Route: 048
     Dates: start: 20140321, end: 20140321
  2. AMOXICILLIN [Concomitant]
     Dosage: 3 DF, UNK
     Route: 048
     Dates: start: 20140321, end: 20140322

REACTIONS (1)
  - Cellulitis [Recovered/Resolved]
